FAERS Safety Report 21961817 (Version 1)
Quarter: 2023Q1

REPORT INFORMATION
  Report Type: Report from Study
  Country: US (occurrence: None)
  Receive Date: 20230207
  Receipt Date: 20230207
  Transmission Date: 20230417
  Serious: Yes (Death, Other)
  Sender: FDA-Public Use
  Company Number: 2023A030929

PATIENT
  Age: 26356 Day
  Sex: Female

DRUGS (1)
  1. FASENRA [Suspect]
     Active Substance: BENRALIZUMAB
     Indication: Asthma
     Dosage: INJECT 1 PEN UNDER THE SKIN AT WEEK 0, 4 AND 8, THEN INJECT 1 PEN EVERY 8 WEEKS
     Route: 058
     Dates: start: 202211

REACTIONS (1)
  - Death [Fatal]

NARRATIVE: CASE EVENT DATE: 20230201
